FAERS Safety Report 19634636 (Version 2)
Quarter: 2021Q4

REPORT INFORMATION
  Report Type: Report from Study
  Country: CN (occurrence: CN)
  Receive Date: 20210729
  Receipt Date: 20211004
  Transmission Date: 20220304
  Serious: Yes (Death, Hospitalization)
  Sender: FDA-Public Use
  Company Number: 2021A630730

PATIENT
  Age: 26873 Day
  Sex: Male

DRUGS (13)
  1. DURVALUMAB [Suspect]
     Active Substance: DURVALUMAB
     Indication: Small cell lung cancer
     Dosage: 1500.0MG ONCE/SINGLE ADMINISTRATION
     Route: 042
     Dates: start: 20210210, end: 20210210
  2. DURVALUMAB [Suspect]
     Active Substance: DURVALUMAB
     Indication: Small cell lung cancer
     Dosage: 1500.0MG ONCE/SINGLE ADMINISTRATION
     Route: 042
     Dates: start: 20210304, end: 20210304
  3. DURVALUMAB [Suspect]
     Active Substance: DURVALUMAB
     Indication: Small cell lung cancer
     Dosage: 1500.0MG ONCE/SINGLE ADMINISTRATION
     Route: 042
     Dates: start: 20210328, end: 20210328
  4. DURVALUMAB [Suspect]
     Active Substance: DURVALUMAB
     Indication: Small cell lung cancer
     Dosage: 1500.0MG ONCE/SINGLE ADMINISTRATION
     Route: 042
     Dates: start: 20210421, end: 20210421
  5. CARBOPLATIN [Suspect]
     Active Substance: CARBOPLATIN
     Indication: Small cell lung cancer
     Dosage: 5 AUC
     Route: 042
     Dates: start: 20210210, end: 20210210
  6. CARBOPLATIN [Suspect]
     Active Substance: CARBOPLATIN
     Indication: Small cell lung cancer
     Dosage: 5 AUC
     Route: 042
     Dates: start: 20210304, end: 20210304
  7. CARBOPLATIN [Suspect]
     Active Substance: CARBOPLATIN
     Indication: Small cell lung cancer
     Dosage: 5 AUC
     Route: 042
     Dates: start: 20210328, end: 20210328
  8. CARBOPLATIN [Suspect]
     Active Substance: CARBOPLATIN
     Indication: Small cell lung cancer
     Dosage: 5 AUC
     Route: 042
     Dates: start: 20210421, end: 20210421
  9. ETOPOSIDE [Suspect]
     Active Substance: ETOPOSIDE
     Indication: Small cell lung cancer
     Route: 042
     Dates: start: 20210210, end: 20210212
  10. ETOPOSIDE [Suspect]
     Active Substance: ETOPOSIDE
     Indication: Small cell lung cancer
     Route: 042
     Dates: start: 20210304, end: 20210306
  11. ETOPOSIDE [Suspect]
     Active Substance: ETOPOSIDE
     Indication: Small cell lung cancer
     Route: 042
     Dates: start: 20210328, end: 20210330
  12. ETOPOSIDE [Suspect]
     Active Substance: ETOPOSIDE
     Indication: Small cell lung cancer
     Route: 042
     Dates: start: 20210421, end: 20210423
  13. LEVAMLODIPINE [Concomitant]
     Active Substance: LEVAMLODIPINE
     Route: 065
     Dates: start: 20210111

REACTIONS (1)
  - Drug-induced liver injury [Not Recovered/Not Resolved]

NARRATIVE: CASE EVENT DATE: 20210719
